FAERS Safety Report 21685360 (Version 1)
Quarter: 2022Q4

REPORT INFORMATION
  Report Type: Spontaneous
  Country: GB (occurrence: GB)
  Receive Date: 20221206
  Receipt Date: 20221206
  Transmission Date: 20230112
  Serious: Yes (Life-Threatening)
  Sender: FDA-Public Use
  Company Number: None

PATIENT
  Sex: Female

DRUGS (4)
  1. CEFUROXIME AXETIL [Suspect]
     Active Substance: CEFUROXIME AXETIL
     Indication: Surgery
     Dosage: 1.5 GRAM (INJECTION)
     Route: 065
     Dates: start: 20221117, end: 20221117
  2. METRONIDAZOLE [Suspect]
     Active Substance: METRONIDAZOLE
     Indication: Surgery
     Dosage: 500 MILLIGRAM
     Route: 065
     Dates: start: 20221117, end: 20221117
  3. OXYTOCIN [Suspect]
     Active Substance: OXYTOCIN
     Indication: Caesarean section
     Dosage: 40 UNITS DILUTED IN 500ML 0.9% SODIUM CHLORIDE
     Route: 065
     Dates: start: 20221117, end: 20221117
  4. OXYTOCIN [Suspect]
     Active Substance: OXYTOCIN
     Dosage: 5 UNITS STAT
     Route: 065
     Dates: start: 20221117, end: 20221117

REACTIONS (1)
  - Hypotension [Recovering/Resolving]

NARRATIVE: CASE EVENT DATE: 20221117
